FAERS Safety Report 10239319 (Version 1)
Quarter: 2014Q2

REPORT INFORMATION
  Report Type: Report from Study
  Country: AR (occurrence: AR)
  Receive Date: 20140616
  Receipt Date: 20140616
  Transmission Date: 20141212
  Serious: Yes (Other)
  Sender: FDA-Public Use
  Company Number: AR-BRISTOL-MYERS SQUIBB COMPANY-20984498

PATIENT
  Age: 64 Year
  Sex: Female

DRUGS (1)
  1. ABATACEPT SUBQ INJECTION 125MG/ML [Suspect]
     Dosage: INTERRUPTED ON 05JUN2014
     Route: 058

REACTIONS (2)
  - Arthropathy [Unknown]
  - Hypersensitivity [Recovering/Resolving]
